FAERS Safety Report 23842224 (Version 1)
Quarter: 2024Q2

REPORT INFORMATION
  Report Type: Spontaneous
  Country: IQ (occurrence: IQ)
  Receive Date: 20240510
  Receipt Date: 20240510
  Transmission Date: 20240716
  Serious: Yes (Disabling, Other)
  Sender: FDA-Public Use
  Company Number: IQ-ARBOR PHARMACEUTICALS, LLC-IQ-2024AZR000534

PATIENT
  Age: 33 Year
  Sex: Male
  Weight: 110 kg

DRUGS (2)
  1. EDARBYCLOR [Suspect]
     Active Substance: AZILSARTAN KAMEDOXOMIL\CHLORTHALIDONE
     Indication: Hypertension
     Dosage: UNK, QD
     Route: 048
  2. OZEMPIC [Concomitant]
     Active Substance: SEMAGLUTIDE
     Indication: Product used for unknown indication
     Dosage: UNK
     Route: 065

REACTIONS (1)
  - Erectile dysfunction [Recovered/Resolved]
